FAERS Safety Report 8564273-6 (Version None)
Quarter: 2012Q3

REPORT INFORMATION
  Report Type: 
  Country: None (occurrence: None)
  Receive Date: 20120803
  Receipt Date: 20120726
  Transmission Date: 20120928
  Serious: Yes (Other)
  Sender: FDA-Public Use
  Company Number: CA-JNJFOC-20120713109

PATIENT
  Sex: Female
  Weight: 77 kg

DRUGS (7)
  1. BENADRYL [Concomitant]
     Indication: PREMEDICATION
     Route: 065
  2. LIPITOR [Concomitant]
     Route: 065
  3. ASACOL [Concomitant]
     Route: 065
  4. SOLU-CORTEF [Concomitant]
     Indication: PREMEDICATION
     Route: 065
  5. REMICADE [Suspect]
     Indication: COLITIS ULCERATIVE
     Dosage: ONCE IN 6-8 WEEKS
     Route: 042
     Dates: start: 20090109
  6. TYLENOL (CAPLET) [Concomitant]
     Indication: PREMEDICATION
     Route: 065
  7. ALL OTHER THERAPEUTICS [Concomitant]
     Route: 065

REACTIONS (3)
  - DYSPNOEA [None]
  - CATARACT [None]
  - RHONCHI [None]
